FAERS Safety Report 23324076 (Version 1)
Quarter: 2023Q4

REPORT INFORMATION
  Report Type: Spontaneous
  Country: CN (occurrence: CN)
  Receive Date: 20231221
  Receipt Date: 20231221
  Transmission Date: 20240110
  Serious: Yes (Other)
  Sender: FDA-Public Use
  Company Number: None

PATIENT
  Age: 4 Year
  Sex: Male
  Weight: 20 kg

DRUGS (8)
  1. CYCLOPHOSPHAMIDE [Suspect]
     Active Substance: CYCLOPHOSPHAMIDE
     Indication: Neoplasm malignant
     Dosage: 0.79 G, ONE TIME IN ONE DAY, DILUTED WITH (4:1) 250 ML OF GLUCOSE SODIUM CHLORIDE, AS A PART OF CAML
     Route: 041
     Dates: start: 20231027, end: 20231027
  2. CYCLOPHOSPHAMIDE [Suspect]
     Active Substance: CYCLOPHOSPHAMIDE
     Indication: Chemotherapy
  3. DEXTROSE\SODIUM CHLORIDE [Suspect]
     Active Substance: DEXTROSE\SODIUM CHLORIDE
     Indication: Medication dilution
     Dosage: (4:1) 250 ML, ONE TIME IN ONE DAY, USED TO DILUTE 0.79 G OF CYCLOPHOSPHAMIDE
     Route: 041
     Dates: start: 20231027, end: 20231027
  4. DEXTROSE\SODIUM CHLORIDE [Suspect]
     Active Substance: DEXTROSE\SODIUM CHLORIDE
     Dosage: (4:1) 100 ML, Q12H, USED TO DILUTE 0.79 G OF CYTARABINE
     Route: 041
     Dates: start: 20231027, end: 20231030
  5. MERCAPTOPURINE [Suspect]
     Active Substance: MERCAPTOPURINE
     Indication: Neoplasm malignant
     Dosage: 39 MG, QN, AS A PART OF CAML REGIMEN CHEMOTHERAPY
     Route: 048
     Dates: start: 20231027, end: 20231102
  6. MERCAPTOPURINE [Suspect]
     Active Substance: MERCAPTOPURINE
     Indication: Chemotherapy
  7. CYTARABINE [Suspect]
     Active Substance: CYTARABINE
     Indication: Neoplasm malignant
     Dosage: 0.79 G, Q12H, DILUTED WITH (4:1) 100 ML OF GLUCOSE SODIUM CHLORIDE INJECTION, AS A PART OF CAML REGI
     Route: 041
     Dates: start: 20231027, end: 20231030
  8. CYTARABINE [Suspect]
     Active Substance: CYTARABINE
     Indication: Chemotherapy

REACTIONS (1)
  - Myelosuppression [Recovering/Resolving]

NARRATIVE: CASE EVENT DATE: 20231106
